FAERS Safety Report 24283290 (Version 1)
Quarter: 2024Q3

REPORT INFORMATION
  Report Type: Spontaneous
  Country: US (occurrence: US)
  Receive Date: 20240904
  Receipt Date: 20240904
  Transmission Date: 20241016
  Serious: No
  Sender: PURDUE
  Company Number: US-PURDUE PHARMA-USA-2024-0311778

PATIENT
  Age: 64 Year
  Sex: Female

DRUGS (4)
  1. OXYCODONE HYDROCHLORIDE [Suspect]
     Active Substance: OXYCODONE HYDROCHLORIDE
     Indication: Back pain
     Dosage: 30 MILLIGRAM SIX DAILY (START DATE:10 YEARS AGO)
     Route: 065
  2. OXYCODONE HYDROCHLORIDE [Suspect]
     Active Substance: OXYCODONE HYDROCHLORIDE
     Dosage: 30 MILLIGRAM, DAILY (4 OXYCODONE)
     Route: 065
  3. OXYCODONE HYDROCHLORIDE [Suspect]
     Active Substance: OXYCODONE HYDROCHLORIDE
     Dosage: 30 MILLIGRAM (OXYCODONE 30MG PRESCRIPTION WAS A LITTLE BLUE PILL)
     Route: 065
  4. PERCOCET [Suspect]
     Active Substance: ACETAMINOPHEN\OXYCODONE HYDROCHLORIDE
     Indication: Back pain
     Dosage: 6 PERCOCET 10/325
     Route: 065

REACTIONS (7)
  - Impaired work ability [Unknown]
  - Therapy interrupted [Unknown]
  - Illness [Unknown]
  - Gait inability [Unknown]
  - Drug tolerance increased [Unknown]
  - Product prescribing error [Unknown]
  - Drug withdrawal syndrome [Unknown]
